FAERS Safety Report 16208442 (Version 1)
Quarter: 2019Q2

REPORT INFORMATION
  Report Type: Spontaneous
  Country: US (occurrence: US)
  Receive Date: 20190417
  Receipt Date: 20190417
  Transmission Date: 20190711
  Serious: Yes (Death)
  Sender: FDA-Public Use
  Company Number: US-BAYER-2019-070523

PATIENT
  Age: 75 Year
  Sex: Male

DRUGS (1)
  1. CIPRO [Suspect]
     Active Substance: CIPROFLOXACIN HYDROCHLORIDE
     Indication: DENTAL CLEANING
     Dosage: 500 MG, BID
     Dates: start: 2003, end: 20160818

REACTIONS (3)
  - Product use in unapproved indication [None]
  - Off label use [None]
  - Aortic aneurysm rupture [Fatal]

NARRATIVE: CASE EVENT DATE: 2003
